FAERS Safety Report 15868628 (Version 1)
Quarter: 2019Q1

REPORT INFORMATION
  Report Type: Spontaneous
  Country: US (occurrence: US)
  Receive Date: 20190125
  Receipt Date: 20190125
  Transmission Date: 20190417
  Serious: Yes (Hospitalization)
  Sender: FDA-Public Use
  Company Number: US-RIGEL PHARMACEUTICALS, INC.-2019FOS000025

PATIENT

DRUGS (1)
  1. TAVALISSE [Suspect]
     Active Substance: FOSTAMATINIB
     Indication: IMMUNE THROMBOCYTOPENIC PURPURA
     Dosage: 150 MG, QD
     Dates: start: 20181109

REACTIONS (3)
  - Intentional product misuse [Unknown]
  - Transfusion [Unknown]
  - Product dose omission [Unknown]

NARRATIVE: CASE EVENT DATE: 20190110
